FAERS Safety Report 18551570 (Version 1)
Quarter: 2020Q4

REPORT INFORMATION
  Report Type: Spontaneous
  Country: US (occurrence: US)
  Receive Date: 20201126
  Receipt Date: 20201126
  Transmission Date: 20210114
  Serious: Yes (Hospitalization, Other)
  Sender: FDA-Public Use
  Company Number: US-009507513-2011USA014862

PATIENT
  Age: 70 Year
  Sex: Female
  Weight: 81.6 kg

DRUGS (19)
  1. FUROSEMIDE. [Concomitant]
     Active Substance: FUROSEMIDE
     Indication: JOINT SWELLING
  2. PRAVASTATIN. [Concomitant]
     Active Substance: PRAVASTATIN
     Indication: BLOOD CHOLESTEROL
     Dosage: 0.5 MILLIGRAM, QD
     Route: 048
     Dates: start: 2012
  3. ARIMIDEX [Suspect]
     Active Substance: ANASTROZOLE
     Indication: BREAST CANCER
     Route: 048
     Dates: start: 2011
  4. MORPHINE [Suspect]
     Active Substance: MORPHINE
     Route: 065
  5. NASONEX [Concomitant]
     Active Substance: MOMETASONE FUROATE
  6. ASPIRIN. [Concomitant]
     Active Substance: ASPIRIN
     Indication: PALPITATIONS
     Dosage: 81 MILLIGRAM, QD
     Route: 048
  7. IBUPROFEN. [Concomitant]
     Active Substance: IBUPROFEN
     Indication: PAIN
     Dosage: AS REQUIRED
     Route: 048
     Dates: start: 2012
  8. OMEPRAZOLE. [Suspect]
     Active Substance: OMEPRAZOLE
     Indication: MUSCULOSKELETAL CHEST PAIN
     Dosage: 40 MILLIGRAM, QD
     Route: 048
  9. ADVAIR HFA [Concomitant]
     Active Substance: FLUTICASONE PROPIONATE\SALMETEROL XINAFOATE
     Indication: ASTHMA
     Dosage: 500/50 DAILY
     Route: 055
     Dates: start: 2000
  10. XYZAL [Concomitant]
     Active Substance: LEVOCETIRIZINE DIHYDROCHLORIDE
     Indication: MULTIPLE ALLERGIES
  11. COMBIVENT [Concomitant]
     Active Substance: ALBUTEROL SULFATE\IPRATROPIUM BROMIDE
     Dosage: TWO PUFFS AS REQUIRED
     Route: 055
  12. GLOBULIN, IMMUNE [Concomitant]
     Active Substance: HUMAN IMMUNOGLOBULIN G
     Indication: IMMUNE SYSTEM DISORDER
     Dates: start: 2010
  13. PREDNISONE. [Concomitant]
     Active Substance: PREDNISONE
     Indication: SINUS DISORDER
     Dosage: AS REQUIRED
     Route: 048
     Dates: start: 2013
  14. PRINIVIL [Suspect]
     Active Substance: LISINOPRIL
     Indication: HYPERTENSION
     Dosage: 20 MILLIGRAM, QD
     Route: 048
  15. ACCOLATE [Suspect]
     Active Substance: ZAFIRLUKAST
     Indication: ASTHMA
     Dosage: 40 MILLIGRAM, QD
     Route: 048
     Dates: start: 2000
  16. DUONEB [Concomitant]
     Active Substance: ALBUTEROL SULFATE\IPRATROPIUM BROMIDE
     Dosage: 2.5/3 AS REQUIRED
     Route: 055
     Dates: start: 2000
  17. LEVOCETIRIZINE DIHYDROCHLORIDE. [Concomitant]
     Active Substance: LEVOCETIRIZINE DIHYDROCHLORIDE
     Indication: MULTIPLE ALLERGIES
     Dosage: 5 HS
     Route: 048
  18. OMEPRAZOLE. [Suspect]
     Active Substance: OMEPRAZOLE
     Dosage: 80 MILLIGRAM, QD
     Route: 048
     Dates: start: 2012
  19. TYLENOL [Concomitant]
     Active Substance: ACETAMINOPHEN
     Indication: PAIN
     Dosage: AS REQUIRED
     Route: 048
     Dates: start: 201212

REACTIONS (24)
  - Breast cancer female [Unknown]
  - Eye swelling [Unknown]
  - Headache [Unknown]
  - Musculoskeletal chest pain [Unknown]
  - Hypertension [Unknown]
  - Salt craving [Unknown]
  - Chronic obstructive pulmonary disease [Unknown]
  - Joint swelling [Unknown]
  - Sinusitis [Unknown]
  - Blood cholesterol increased [Unknown]
  - Diverticulitis [Unknown]
  - Pneumonia [Recovered/Resolved]
  - Arthritis [Unknown]
  - Immunodeficiency [Unknown]
  - Palpitations [Recovered/Resolved]
  - Swelling face [Unknown]
  - Feeling abnormal [Unknown]
  - Body height decreased [Unknown]
  - Drug hypersensitivity [Unknown]
  - Middle insomnia [Unknown]
  - Cataract [Unknown]
  - Rotator cuff syndrome [Unknown]
  - Off label use [Unknown]
  - Drug ineffective [Unknown]

NARRATIVE: CASE EVENT DATE: 2000
